FAERS Safety Report 13472722 (Version 2)
Quarter: 2017Q2

REPORT INFORMATION
  Report Type: Spontaneous
  Country: SE (occurrence: SE)
  Receive Date: 20170424
  Receipt Date: 20170425
  Transmission Date: 20170830
  Serious: Yes (Life-Threatening, Hospitalization)
  Sender: FDA-Public Use
  Company Number: SE-ASTRAZENECA-2017SE41597

PATIENT
  Age: 36 Year
  Sex: Male

DRUGS (10)
  1. CITALOPRAM [Suspect]
     Active Substance: CITALOPRAM HYDROBROMIDE
     Dosage: 35 MG (SINGELDOS)
     Route: 048
     Dates: start: 20150617, end: 20150617
  2. CIPRALEX [Concomitant]
     Active Substance: ESCITALOPRAM OXALATE
  3. SOBRIL [Concomitant]
     Active Substance: OXAZEPAM
  4. SEROQUEL [Suspect]
     Active Substance: QUETIAPINE FUMARATE
     Dosage: 1200 MG SINGLE DOSE
     Route: 048
     Dates: start: 20150617, end: 20150617
  5. LOCOID [Concomitant]
     Active Substance: HYDROCORTISONE BUTYRATE
  6. ELOCON [Concomitant]
     Active Substance: MOMETASONE FUROATE
  7. LOPERAMIDE [Concomitant]
     Active Substance: LOPERAMIDE
  8. ABILIFY [Concomitant]
     Active Substance: ARIPIPRAZOLE
  9. XANOR [Suspect]
     Active Substance: ALPRAZOLAM
     Dosage: UNKNOWN AMOUNT AND STRENGHT
     Route: 048
     Dates: start: 20150617, end: 20150617
  10. EMOVAT [Concomitant]

REACTIONS (5)
  - Depressed level of consciousness [Recovered/Resolved]
  - Hypotension [Recovered/Resolved]
  - Suicide attempt [Recovered/Resolved]
  - Toxicity to various agents [Recovered/Resolved]
  - Tachycardia [Recovered/Resolved]

NARRATIVE: CASE EVENT DATE: 20150617
